FAERS Safety Report 17838057 (Version 8)
Quarter: 2021Q2

REPORT INFORMATION
  Report Type: Spontaneous
  Country: CA (occurrence: CA)
  Receive Date: 20200528
  Receipt Date: 20210601
  Transmission Date: 20210717
  Serious: Yes (Other)
  Sender: FDA-Public Use
  Company Number: CA-CELLTRION INC.-2019CA021088

PATIENT

DRUGS (25)
  1. INFLECTRA [Suspect]
     Active Substance: INFLIXIMAB-DYYB
     Dosage: 300 MG, 10 WEEKS AFTER LAST INFUSION
     Route: 042
     Dates: start: 20191029
  2. METHADONE [Concomitant]
     Active Substance: METHADONE HYDROCHLORIDE
     Dosage: 2 MG, AS NEEDED (PRN 3X/DAY)
  3. METHADONE [Concomitant]
     Active Substance: METHADONE HYDROCHLORIDE
     Dosage: 2 MG, 3X/DAY (AS NEEDED)
     Route: 065
  4. LOXAPINE. [Concomitant]
     Active Substance: LOXAPINE
     Dosage: UNK
     Route: 065
  5. DIPHENHYDRAMINE. [Concomitant]
     Active Substance: DIPHENHYDRAMINE
     Dosage: 25 MG, UNK
     Route: 048
     Dates: start: 20200310
  6. INFLECTRA [Suspect]
     Active Substance: INFLIXIMAB-DYYB
     Indication: PSORIATIC ARTHROPATHY
     Dosage: 300 MG, 0, 2, 6 WEEKS, THEN EVERY 8 WEEKS
     Route: 042
     Dates: start: 20190502
  7. INFLECTRA [Suspect]
     Active Substance: INFLIXIMAB-DYYB
     Dosage: 400 MG, EVERY 8 WEEKS
     Route: 042
     Dates: start: 20200310, end: 20200310
  8. INFLECTRA [Suspect]
     Active Substance: INFLIXIMAB-DYYB
     Dosage: 8 MG/KG, (600 MG EVERY 8 WEEKS)
     Route: 042
     Dates: start: 20200505, end: 20200505
  9. BICAPROL [Concomitant]
     Dosage: 0.5 DF, UNK
     Route: 065
  10. DULOXETINE. [Concomitant]
     Active Substance: DULOXETINE
     Dosage: 60 MG, DAILY
  11. INFLECTRA [Suspect]
     Active Substance: INFLIXIMAB-DYYB
     Dosage: 8 MG/KG, (600 MG EVERY 8 WEEKS)
     Route: 042
     Dates: start: 20200505, end: 20200505
  12. INFLECTRA [Suspect]
     Active Substance: INFLIXIMAB-DYYB
     Dosage: 300 MG, 10 WEEKS AFTER LAST INFUSION
     Route: 042
     Dates: start: 20191029
  13. INFLECTRA [Suspect]
     Active Substance: INFLIXIMAB-DYYB
     Dosage: 8 MG/KG, (600 MG EVERY 8 WEEKS)
     Route: 042
     Dates: start: 20200505, end: 20200505
  14. TYLENOL [Concomitant]
     Active Substance: ACETAMINOPHEN
     Dosage: 1?2 TABS, AS NEEDED
     Route: 065
  15. RANITIDINE. [Concomitant]
     Active Substance: RANITIDINE
     Dosage: UNK
     Route: 065
  16. INFLECTRA [Suspect]
     Active Substance: INFLIXIMAB-DYYB
     Dosage: 8 MG/KG, (600 MG EVERY 8 WEEKS)
     Route: 042
     Dates: start: 20200505, end: 20200505
  17. DOMPERIDONE [Concomitant]
     Active Substance: DOMPERIDONE
     Dosage: UNK
     Route: 065
  18. DIPHENHYDRAMINE. [Concomitant]
     Active Substance: DIPHENHYDRAMINE
     Dosage: 50 MG, UNK
     Route: 048
     Dates: start: 20190502
  19. INFLECTRA [Suspect]
     Active Substance: INFLIXIMAB-DYYB
     Dosage: 300 MG, 0, 2, 6 WEEKS, THEN EVERY 8 WEEKS
     Route: 042
     Dates: start: 20190820
  20. INFLECTRA [Suspect]
     Active Substance: INFLIXIMAB-DYYB
     Dosage: 300 MG, 10 WEEKS AFTER LAST INFUSION
     Route: 042
     Dates: start: 20200108
  21. METHADONE [Concomitant]
     Active Substance: METHADONE HYDROCHLORIDE
     Dosage: 2 MG, 3X/DAY (AS NEEDED)
     Route: 065
  22. INFLECTRA [Suspect]
     Active Substance: INFLIXIMAB-DYYB
     Dosage: 300 MG, 10 WEEKS AFTER LAST INFUSION
     Route: 042
     Dates: start: 20200108
  23. INFLECTRA [Suspect]
     Active Substance: INFLIXIMAB-DYYB
     Dosage: 400 MG, EVERY 8 WEEKS
     Route: 042
     Dates: start: 20200310, end: 20200310
  24. METHADONE [Concomitant]
     Active Substance: METHADONE HYDROCHLORIDE
     Dosage: 2.5 ML, 3X/DAY
  25. SULFASALAZINE. [Concomitant]
     Active Substance: SULFASALAZINE
     Dosage: 1 G, 2X/DAY
     Route: 065

REACTIONS (12)
  - Incorrect dose administered [Unknown]
  - Limb discomfort [Unknown]
  - Tooth infection [Recovered/Resolved]
  - Off label use [Unknown]
  - Intentional product use issue [Unknown]
  - Crohn^s disease [Unknown]
  - Malaise [Recovered/Resolved]
  - Cellulitis [Not Recovered/Not Resolved]
  - Blood pressure increased [Unknown]
  - Tooth abscess [Recovered/Resolved]
  - Vasculitis [Unknown]
  - Oxygen saturation decreased [Unknown]

NARRATIVE: CASE EVENT DATE: 20190502
